FAERS Safety Report 5273653-6 (Version None)
Quarter: 2007Q1

REPORT INFORMATION
  Report Type: 
  Country: None (occurrence: None)
  Receive Date: 20070321
  Receipt Date: 20070321
  Transmission Date: 20070707
  Serious: Yes (Other)
  Sender: FDA-Public Use
  Company Number: None

PATIENT
  Age: 69 Year
  Sex: Female
  Weight: 67.1324 kg

DRUGS (1)
  1. LISINOPRIL AND HYDROCHLOROTHIAZIDE [Suspect]
     Indication: HYPERTENSION
     Dosage: 1 PILL ONCE A DAY PO
     Route: 048
     Dates: start: 20061110, end: 20070308

REACTIONS (3)
  - COUGH [None]
  - HYPERSENSITIVITY [None]
  - SINUS DISORDER [None]
